FAERS Safety Report 8869571 (Version 2)
Quarter: 2012Q4

REPORT INFORMATION
  Report Type: Report from Study
  Country: DE (occurrence: DE)
  Receive Date: 20121026
  Receipt Date: 20121114
  Transmission Date: 20130627
  Serious: Yes (Death, Hospitalization)
  Sender: FDA-Public Use
  Company Number: DE-ROCHE-1035402

PATIENT
  Age: 71 Year
  Sex: Female
  Weight: 66 kg

DRUGS (10)
  1. CAPECITABINE [Suspect]
     Indication: COLON CANCER
     Route: 048
     Dates: start: 20111220
  2. OXALIPLATIN [Suspect]
     Indication: COLON CANCER
     Route: 042
     Dates: start: 20120209, end: 20120209
  3. ENALAPRIL [Concomitant]
     Dosage: 1x1
     Route: 065
  4. METFORMIN [Concomitant]
     Dosage: 2x1000mg
     Route: 065
  5. FORADIL [Concomitant]
     Dosage: 2x1
     Route: 065
  6. BUDENOFALK [Concomitant]
     Dosage: 3x1
     Route: 065
  7. NITRENDIPIN [Concomitant]
     Dosage: 1x1
     Route: 065
  8. ATENOLOL [Concomitant]
     Dosage: 1x1
     Route: 065
  9. AMARYL [Concomitant]
     Dosage: 2x1
     Route: 065
  10. HYDROCHLOROTHIAZIDE [Concomitant]
     Dosage: 1x1
     Route: 065

REACTIONS (2)
  - Vomiting [Recovered/Resolved]
  - General physical health deterioration [Fatal]
